FAERS Safety Report 9223535 (Version 1)
Quarter: 2013Q2

REPORT INFORMATION
  Report Type: Spontaneous
  Country: US (occurrence: US)
  Receive Date: 20130410
  Receipt Date: 20130410
  Transmission Date: 20140414
  Serious: Yes (Other)
  Sender: FDA-Public Use
  Company Number: US-BAYER-2013-044404

PATIENT
  Age: 24 Year
  Sex: Female

DRUGS (2)
  1. MIRENA [Suspect]
     Indication: CONTRACEPTION
     Dosage: 20 MCG/24HR, CONT
     Route: 015
     Dates: start: 201211
  2. MIRENA [Suspect]
     Indication: MENORRHAGIA

REACTIONS (6)
  - Genital haemorrhage [None]
  - Abdominal pain [None]
  - Migraine [None]
  - Loss of libido [None]
  - Pain [None]
  - Medical device discomfort [None]
